FAERS Safety Report 22220635 (Version 1)
Quarter: 2023Q2

REPORT INFORMATION
  Report Type: Spontaneous
  Country: US (occurrence: US)
  Receive Date: 20230417
  Receipt Date: 20230417
  Transmission Date: 20230721
  Serious: No
  Sender: FDA-Public Use
  Company Number: US-drreddys-SPO/USA/23/0163290

PATIENT
  Age: 84 Year
  Sex: Female

DRUGS (2)
  1. IBANDRONATE SODIUM [Suspect]
     Active Substance: IBANDRONATE SODIUM
     Indication: Product used for unknown indication
  2. ATORVASTATIN [Concomitant]
     Active Substance: ATORVASTATIN
     Indication: Product used for unknown indication

REACTIONS (1)
  - Ear swelling [Recovered/Resolved]
